FAERS Safety Report 17692097 (Version 4)
Quarter: 2021Q4

REPORT INFORMATION
  Report Type: Spontaneous
  Country: US (occurrence: US)
  Receive Date: 20200422
  Receipt Date: 20211001
  Transmission Date: 20220303
  Serious: Yes (Hospitalization, Other)
  Sender: FDA-Public Use
  Company Number: US-PFIZER INC-2020155115

PATIENT
  Age: 49 Year
  Sex: Female
  Weight: 97.98 kg

DRUGS (2)
  1. LYRICA [Suspect]
     Active Substance: PREGABALIN
     Indication: Neuralgia
     Dosage: 100 MG, 3X/DAY
  2. LYRICA [Suspect]
     Active Substance: PREGABALIN
     Indication: Nerve injury

REACTIONS (6)
  - Pneumonia [Unknown]
  - COVID-19 [Unknown]
  - Coma [Unknown]
  - Acute respiratory failure [Unknown]
  - Burning sensation [Unknown]
  - Asthenia [Unknown]

NARRATIVE: CASE EVENT DATE: 20210827
